FAERS Safety Report 4404964-1 (Version None)
Quarter: 2004Q3

REPORT INFORMATION
  Report Type: 
  Country: None (occurrence: None)
  Receive Date: 20040719
  Receipt Date: 20040707
  Transmission Date: 20050211
  Serious: Yes (Other)
  Sender: FDA-Public Use
  Company Number: A-US2004-06764

PATIENT
  Age: 49 Year
  Sex: Female

DRUGS (4)
  1. TRACLEER [Suspect]
     Indication: PULMONARY HYPERTENSION
     Dosage: 125 MG, BID, ORAL  : 62.5 MG, BID, ORAL
     Route: 048
     Dates: start: 20040305, end: 20040405
  2. TRACLEER [Suspect]
     Indication: PULMONARY HYPERTENSION
     Dosage: 125 MG, BID, ORAL  : 62.5 MG, BID, ORAL
     Route: 048
     Dates: start: 20040406, end: 20040706
  3. COUMADIN [Concomitant]
  4. LEVOXYL [Concomitant]

REACTIONS (6)
  - ALANINE AMINOTRANSFERASE INCREASED [None]
  - ASPARTATE AMINOTRANSFERASE INCREASED [None]
  - BLOOD ALKALINE PHOSPHATASE INCREASED [None]
  - BLOOD BILIRUBIN INCREASED [None]
  - NAUSEA [None]
  - VOMITING [None]
